APPROVED DRUG PRODUCT: MANGANESE SULFATE
Active Ingredient: MANGANESE SULFATE
Strength: EQ 0.1MG MANGANESE/ML **Federal Register determination that product was not discontinued or withdrawn for safety or effectiveness reasons**
Dosage Form/Route: INJECTABLE;INJECTION
Application: N019228 | Product #001
Applicant: ABRAXIS PHARMACEUTICAL PRODUCTS
Approved: May 5, 1987 | RLD: Yes | RS: No | Type: DISCN